FAERS Safety Report 6098058-X (Version None)
Quarter: 2009Q1

REPORT INFORMATION
  Report Type: 
  Country: None (occurrence: None)
  Receive Date: 20090227
  Receipt Date: 20090218
  Transmission Date: 20090719
  Serious: Yes (Other)
  Sender: FDA-Public Use
  Company Number: US-AMGEN-US334652

PATIENT
  Age: 48 Year
  Sex: Male

DRUGS (2)
  1. VECTIBIX [Suspect]
     Indication: COLORECTAL CANCER
     Route: 042
  2. IRINOTECAN HCL [Concomitant]
     Route: 042

REACTIONS (7)
  - COUGH [None]
  - DERMATITIS ACNEIFORM [None]
  - DISEASE PROGRESSION [None]
  - DYSPNOEA [None]
  - RASH [None]
  - URTICARIA [None]
  - VITAL CAPACITY DECREASED [None]
